FAERS Safety Report 4360415-7 (Version None)
Quarter: 2004Q2

REPORT INFORMATION
  Report Type: 
  Country: None (occurrence: None)
  Receive Date: 20040514
  Receipt Date: 20040428
  Transmission Date: 20050107
  Serious: Yes (Other)
  Sender: FDA-Public Use
  Company Number: 2004-DE-02385GD

PATIENT
  Sex: Female

DRUGS (3)
  1. NEVIRAPINE (NEVIRAPINE) [Suspect]
     Indication: HIV INFECTION
     Dosage: 150 MG
     Route: 048
  2. ZIDOVUDINE [Suspect]
     Indication: HIV INFECTION
     Dosage: 600 MG
     Route: 048
  3. ANTIBIOTIC (ANTIBIOTICS) [Concomitant]

REACTIONS (4)
  - CAESAREAN SECTION [None]
  - COMPLICATIONS OF MATERNAL EXPOSURE TO THERAPEUTIC DRUGS [None]
  - ENDOMETRITIS [None]
  - POST PROCEDURAL COMPLICATION [None]
